FAERS Safety Report 24245824 (Version 1)
Quarter: 2024Q3

REPORT INFORMATION
  Report Type: Spontaneous
  Country: BR (occurrence: BR)
  Receive Date: 20240824
  Receipt Date: 20240824
  Transmission Date: 20241017
  Serious: Yes (Hospitalization, Other)
  Sender: AMGEN
  Company Number: BR-AMGEN-BRASP2024164737

PATIENT
  Age: 18 Year
  Sex: Female

DRUGS (2)
  1. INFLIXIMAB [Suspect]
     Active Substance: INFLIXIMAB
     Indication: Crohn^s disease
     Dosage: UNK
     Route: 065
  2. METHOTREXATE [Concomitant]
     Active Substance: METHOTREXATE
     Indication: Crohn^s disease
     Dosage: 25 MILLIGRAM, QWK
     Route: 030

REACTIONS (7)
  - Pemphigus [Recovering/Resolving]
  - Intestinal haemorrhage [Recovering/Resolving]
  - Oral herpes [Recovering/Resolving]
  - Oral candidiasis [Recovered/Resolved]
  - Peripheral ischaemia [Recovered/Resolved]
  - Nail pigmentation [Recovered/Resolved]
  - Dermatophytosis [Unknown]
